FAERS Safety Report 7802018-5 (Version None)
Quarter: 2011Q4

REPORT INFORMATION
  Report Type: 
  Country: None (occurrence: None)
  Receive Date: 20111007
  Receipt Date: 20110930
  Transmission Date: 20120403
  Serious: Yes (Death)
  Sender: FDA-Public Use
  Company Number: PHHY2011BR87035

PATIENT
  Sex: Male

DRUGS (4)
  1. EXELON [Suspect]
     Dosage: 9MG/5CM2
  2. FORMOTEROL FUMARATE [Suspect]
     Dosage: 12/200 MCG
  3. EXELON [Suspect]
     Dosage: 1.5 MG, UNK
  4. FORMOTEROL FUMARATE [Suspect]
     Dosage: 12/400 MCG

REACTIONS (3)
  - EMPHYSEMA [None]
  - MULTI-ORGAN FAILURE [None]
  - PARKINSON'S DISEASE [None]
